FAERS Safety Report 6358562-3 (Version None)
Quarter: 2009Q3

REPORT INFORMATION
  Report Type: 
  Country: None (occurrence: None)
  Receive Date: 20090914
  Receipt Date: 20090903
  Transmission Date: 20100115
  Serious: Yes (Other)
  Sender: FDA-Public Use
  Company Number: 2009SP024442

PATIENT
  Sex: Female

DRUGS (2)
  1. CORICIDIN HBP MAX STRENGTH FLU (2 MG) [Suspect]
     Dosage: 4 MG; BID; PO
     Route: 048
     Dates: start: 20090902
  2. ENALAPRIL MALEATE [Concomitant]

REACTIONS (3)
  - BLOOD PRESSURE SYSTOLIC INCREASED [None]
  - DIARRHOEA [None]
  - SKIN BURNING SENSATION [None]
